FAERS Safety Report 4950600-5 (Version None)
Quarter: 2006Q1

REPORT INFORMATION
  Report Type: 
  Country: None (occurrence: None)
  Receive Date: 20060322
  Receipt Date: 20051003
  Transmission Date: 20060701
  Serious: Yes (Hospitalization, Disabling)
  Sender: FDA-Public Use
  Company Number: US-MERCK-0510USA02890

PATIENT
  Sex: Female

DRUGS (2)
  1. VIOXX [Suspect]
     Route: 048
     Dates: start: 19990601, end: 20030607
  2. BEXTRA [Suspect]
     Route: 065
     Dates: start: 20030801, end: 20040201

REACTIONS (1)
  - MYOCARDIAL INFARCTION [None]
